FAERS Safety Report 12451444 (Version 1)
Quarter: 2016Q2

REPORT INFORMATION
  Report Type: Spontaneous
  Country: US (occurrence: None)
  Receive Date: 20160608
  Receipt Date: 20160608
  Transmission Date: 20160815
  Serious: No
  Sender: FDA-Public Use
  Company Number: None

PATIENT
  Age: 65 Year
  Sex: Male

DRUGS (2)
  1. MAGNESIUM OXIDE. [Concomitant]
     Active Substance: MAGNESIUM OXIDE
  2. CAPECITABINE 500 MG TABLET TEVA [Suspect]
     Active Substance: CAPECITABINE
     Indication: OESOPHAGEAL CARCINOMA
     Dosage: 3 TABLETS IN AM, 2 TABLETS IN PM 2 WKS ON, 1 WK OFF PO
     Route: 048
     Dates: start: 201603

REACTIONS (1)
  - Temperature intolerance [None]

NARRATIVE: CASE EVENT DATE: 201606
